FAERS Safety Report 9824285 (Version 1)
Quarter: 2014Q1

REPORT INFORMATION
  Report Type: Spontaneous
  Country: US (occurrence: US)
  Receive Date: 20140116
  Receipt Date: 20140116
  Transmission Date: 20141002
  Serious: No
  Sender: FDA-Public Use
  Company Number: US-GILEAD-2011-0039459

PATIENT
  Age: 31 Year
  Sex: Female

DRUGS (2)
  1. LETAIRIS [Suspect]
     Indication: PRODUCT USED FOR UNKNOWN INDICATION
     Route: 048
     Dates: start: 20081205
  2. VELETRI [Concomitant]

REACTIONS (3)
  - Pain in jaw [Unknown]
  - Pain in extremity [Unknown]
  - Headache [Unknown]
